FAERS Safety Report 9563667 (Version 1)
Quarter: 2013Q3

REPORT INFORMATION
  Report Type: Spontaneous
  Country: US (occurrence: None)
  Receive Date: 20130916
  Receipt Date: 20130916
  Transmission Date: 20140515
  Serious: Yes (Other)
  Sender: FDA-Public Use
  Company Number: JPI-P-009997

PATIENT
  Age: 44 Year
  Sex: Male
  Weight: 94.8 kg

DRUGS (13)
  1. XYREM (500 MILLIGRAM/MILLILITERS, SOLUTION) (SODIUM OXYBATE) [Suspect]
     Indication: INSOMNIA
     Dosage: 5 GM (2.5 GM, 2 IN 1 D), ORAL
     Route: 048
     Dates: start: 20100204, end: 2010
  2. TRAZODONE [Concomitant]
  3. L-METHYLFOLATE CALCIUM [Concomitant]
  4. CITALOPRAM HYDROBROMIDE [Concomitant]
  5. TRIAZOLAM [Concomitant]
  6. DRONABINOL [Concomitant]
  7. TRAMADOL [Concomitant]
  8. HYDROCODONE BITARTRATE AND ACETAMINOPHEN [Concomitant]
  9. MORPHINE [Concomitant]
  10. FENOFIBRATE [Concomitant]
  11. MORPHINE SULFATE [Concomitant]
  12. LORAZEPAM [Concomitant]
  13. MULTIPLE VITAMIN [Concomitant]

REACTIONS (6)
  - Blood pressure increased [None]
  - Hiatus hernia [None]
  - Condition aggravated [None]
  - Anxiety [None]
  - Osteoarthritis [None]
  - Drug effect decreased [None]
